FAERS Safety Report 23060254 (Version 2)
Quarter: 2023Q4

REPORT INFORMATION
  Report Type: Spontaneous
  Country: PT (occurrence: None)
  Receive Date: 20231012
  Receipt Date: 20231020
  Transmission Date: 20240110
  Serious: Yes (Hospitalization, Congenital Anomaly, Other)
  Sender: FDA-Public Use
  Company Number: 2023A225532

PATIENT
  Age: 50 Year
  Sex: Female

DRUGS (28)
  1. QUETIAPINE [Suspect]
     Active Substance: QUETIAPINE
     Indication: Product used for unknown indication
     Dosage: 5 TIMES A DAY
     Route: 048
     Dates: start: 20220707, end: 20220818
  2. QUETIAPINE [Suspect]
     Active Substance: QUETIAPINE
     Indication: Product used for unknown indication
     Route: 048
  3. QUETIAPINE [Suspect]
     Active Substance: QUETIAPINE
     Indication: Product used for unknown indication
     Route: 048
     Dates: end: 20220622
  4. QUETIAPINE [Suspect]
     Active Substance: QUETIAPINE
     Indication: Product used for unknown indication
     Dosage: 3 TIMES A DAY
     Route: 048
     Dates: end: 20220707
  5. OLANZAPINE [Suspect]
     Active Substance: OLANZAPINE
     Indication: Product used for unknown indication
     Dates: start: 20220921
  6. OLANZAPINE [Suspect]
     Active Substance: OLANZAPINE
     Indication: Product used for unknown indication
     Dates: end: 20220707
  7. PAROXETINE [Suspect]
     Active Substance: PAROXETINE
     Indication: Product used for unknown indication
     Dosage: 3 TIMES A DAY
     Dates: end: 20220707
  8. PAROXETINE [Suspect]
     Active Substance: PAROXETINE
     Indication: Product used for unknown indication
     Dates: start: 20220707, end: 20220818
  9. PAROXETINE [Suspect]
     Active Substance: PAROXETINE
     Indication: Product used for unknown indication
     Dates: end: 20220622
  10. PAROXETINE [Suspect]
     Active Substance: PAROXETINE
     Indication: Product used for unknown indication
     Dosage: TWICE A DAY
     Dates: start: 20220818, end: 20220921
  11. RISPERIDONE [Suspect]
     Active Substance: RISPERIDONE
     Dates: start: 20220818
  12. CHLORPROMAZINE [Suspect]
     Active Substance: CHLORPROMAZINE
     Indication: Product used for unknown indication
     Dosage: 100 MG, DAILY
     Dates: start: 20220622
  13. CLONAZEPAM [Suspect]
     Active Substance: CLONAZEPAM
     Indication: Product used for unknown indication
     Dosage: ? 2 ONCE A DAY
     Dates: start: 20220818
  14. CLONAZEPAM [Suspect]
     Active Substance: CLONAZEPAM
     Indication: Product used for unknown indication
     Dosage: ? + ? + 1
  15. CLONAZEPAM [Suspect]
     Active Substance: CLONAZEPAM
     Indication: Product used for unknown indication
     Dosage: ONCE A DAY
     Dates: start: 20220622
  16. GABAPENTIN [Suspect]
     Active Substance: GABAPENTIN
     Indication: Product used for unknown indication
     Dosage: ONCE A DAY
  17. GABAPENTIN [Suspect]
     Active Substance: GABAPENTIN
     Indication: Product used for unknown indication
     Dosage: 3 TIMES A DAY
     Dates: start: 20220622
  18. EMPAGLIFLOZIN\METFORMIN HYDROCHLORIDE [Concomitant]
     Active Substance: EMPAGLIFLOZIN\METFORMIN HYDROCHLORIDE
     Indication: Product used for unknown indication
     Dosage: 12.5MG/100MG BID
  19. GLICLAZIDE [Concomitant]
     Active Substance: GLICLAZIDE
     Indication: Product used for unknown indication
     Dosage: 30 MG, DAILY
  20. FOLIC ACID [Concomitant]
     Active Substance: FOLIC ACID
     Indication: Product used for unknown indication
     Dosage: 5 MG, DAILY
  21. LEVOTHYROXINE [Concomitant]
     Active Substance: LEVOTHYROXINE
     Indication: Product used for unknown indication
     Dosage: 25 UG, DAILY
  22. METFORMIN HYDROCHLORIDE [Concomitant]
     Active Substance: METFORMIN HYDROCHLORIDE
     Indication: Product used for unknown indication
     Dosage: 1000 MG, DAILY
  23. PANTOPRAZOLE [Concomitant]
     Active Substance: PANTOPRAZOLE
     Indication: Product used for unknown indication
  24. PROPRANOLOL [Concomitant]
     Active Substance: PROPRANOLOL HYDROCHLORIDE
     Indication: Product used for unknown indication
     Dosage: 40 MG, DAILY
  25. ROSUVASTATIN [Concomitant]
     Active Substance: ROSUVASTATIN
     Indication: Product used for unknown indication
  26. FLUTICASONE PROPIONATE\SALMETEROL XINAFOATE [Concomitant]
     Active Substance: FLUTICASONE PROPIONATE\SALMETEROL XINAFOATE
     Indication: Product used for unknown indication
     Dosage: 250 MCG/DOSE;50 MCG/DOSE, BID
  27. FENOFIBRATE [Concomitant]
     Active Substance: FENOFIBRATE
     Indication: Product used for unknown indication
  28. CHOLECALCIFEROL [Concomitant]
     Active Substance: CHOLECALCIFEROL
     Indication: Product used for unknown indication
     Dosage: 22400 INTERNATIONAL UNIT, EVERY 28 DAYS

REACTIONS (22)
  - Irritability [Unknown]
  - Panic attack [Unknown]
  - Suicidal ideation [Unknown]
  - Weight decreased [Unknown]
  - Nightmare [Unknown]
  - Suicidal ideation [Recovered/Resolved]
  - Violence-related symptom [Recovered/Resolved]
  - Affective disorder [Recovered/Resolved]
  - Depressed mood [Unknown]
  - Anhedonia [Recovering/Resolving]
  - Agitation [Unknown]
  - Pseudohallucination [Recovered/Resolved]
  - Hallucination, auditory [Recovered/Resolved]
  - Fatigue [Unknown]
  - Anxiety [Unknown]
  - Self-injurious ideation [Recovered/Resolved]
  - Middle insomnia [Unknown]
  - Accidental overdose [Unknown]
  - Initial insomnia [Unknown]
  - Somnolence [Unknown]
  - Insomnia [Unknown]
  - Wrong dose [Unknown]

NARRATIVE: CASE EVENT DATE: 20220622
